FAERS Safety Report 4712252-9 (Version None)
Quarter: 2005Q3

REPORT INFORMATION
  Report Type: 
  Country: None (occurrence: None)
  Receive Date: 20050712
  Receipt Date: 20050519
  Transmission Date: 20060218
  Serious: Yes (Hospitalization)
  Sender: FDA-Public Use
  Company Number: US-GLAXOSMITHKLINE-B0382284A

PATIENT
  Age: 26 Year
  Sex: Male

DRUGS (2)
  1. SAWACILLIN [Suspect]
     Indication: ACUTE TONSILLITIS
     Dosage: 500MG SEE DOSAGE TEXT
     Route: 048
     Dates: start: 20050424, end: 20050425
  2. LOXONIN [Concomitant]
     Dosage: 1U PER DAY
     Route: 048
     Dates: start: 20050424, end: 20050425

REACTIONS (5)
  - ALANINE AMINOTRANSFERASE INCREASED [None]
  - ASPARTATE AMINOTRANSFERASE INCREASED [None]
  - HEPATIC ENZYME INCREASED [None]
  - HEPATIC FUNCTION ABNORMAL [None]
  - HEPATIC TRAUMA [None]
